FAERS Safety Report 4678408-9 (Version None)
Quarter: 2005Q2

REPORT INFORMATION
  Report Type: 
  Country: None (occurrence: None)
  Receive Date: 20050531
  Receipt Date: 20050518
  Transmission Date: 20051028
  Serious: Yes (Death, Hospitalization, Other)
  Sender: FDA-Public Use
  Company Number: 2005-04-2083

PATIENT
  Age: 79 Year
  Sex: Female
  Weight: 81.6475 kg

DRUGS (14)
  1. TEMODAR [Suspect]
     Indication: METASTASES TO CENTRAL NERVOUS SYSTEM
     Dosage: 75 MG/M^2 QD ORAL
     Route: 048
     Dates: start: 20050317, end: 20050404
  2. DECADRON [Suspect]
     Indication: METASTASES TO CENTRAL NERVOUS SYSTEM
     Dosage: 4 MG QD
  3. PREDNISONE [Suspect]
     Indication: METASTASES TO CENTRAL NERVOUS SYSTEM
     Dosage: 20 MG QD ORAL
     Route: 048
  4. RADIATION THERAPY [Concomitant]
  5. ADVAIR (SALMETEROL/FLUTICASONE) [Concomitant]
  6. CARDIZEM [Concomitant]
  7. PAXIL [Concomitant]
  8. K-LYTE [Concomitant]
  9. PROTONIX (PANTOPRAZOLED SODIUM) [Concomitant]
  10. VITRON-C1 [Concomitant]
  11. TYLENOL W/ CODEINE NO. 3 [Concomitant]
  12. AMBIEN (ZOLPIDEM TARTRATE) PRN [Concomitant]
  13. TYLENOL PRN [Concomitant]
  14. PHENERGAN PRN [Concomitant]

REACTIONS (17)
  - ACUTE PRERENAL FAILURE [None]
  - ASTHENIA [None]
  - DEEP VEIN THROMBOSIS [None]
  - DEHYDRATION [None]
  - DIABETES MELLITUS INADEQUATE CONTROL [None]
  - DIZZINESS [None]
  - DYSLIPIDAEMIA [None]
  - DYSSTASIA [None]
  - FATIGUE [None]
  - HAEMATOCHEZIA [None]
  - HYPERGLYCAEMIA [None]
  - LETHARGY [None]
  - MENTAL STATUS CHANGES [None]
  - OEDEMA PERIPHERAL [None]
  - ORAL CANDIDIASIS [None]
  - PNEUMONIA STAPHYLOCOCCAL [None]
  - POLYURIA [None]
